FAERS Safety Report 17539087 (Version 1)
Quarter: 2020Q1

REPORT INFORMATION
  Report Type: Spontaneous
  Country: US (occurrence: US)
  Receive Date: 20200312
  Receipt Date: 20200312
  Transmission Date: 20200409
  Serious: Yes (Other)
  Sender: FDA-Public Use
  Company Number: None

PATIENT
  Age: 72 Year
  Sex: Female
  Weight: 91.1 kg

DRUGS (18)
  1. INSULIN GLARGINE U100 [Concomitant]
  2. METFORMIN [Concomitant]
     Active Substance: METFORMIN HYDROCHLORIDE
  3. FUROSEMIDE 20 MG [Concomitant]
     Active Substance: FUROSEMIDE
  4. INSULIN ASPART U100 [Concomitant]
  5. LACTASE 9000 UNITS [Concomitant]
  6. CHOLECALCIFEROL 4000 UNITS [Concomitant]
  7. GABAPENTIN 100 MG [Concomitant]
     Active Substance: GABAPENTIN
  8. LISINOPN^L/HCTZ 20/125 MG [Concomitant]
  9. ASCORBIC ACID 500 MG [Concomitant]
  10. ASPIRIN 81 MG [Concomitant]
     Active Substance: ASPIRIN
  11. MULTIVITAMIN [Concomitant]
     Active Substance: VITAMINS
  12. NAPROXEN 220 MG [Concomitant]
     Active Substance: NAPROXEN
  13. SIMVASTATIN 10 MG [Concomitant]
     Active Substance: SIMVASTATIN
  14. OZEMPIC [Suspect]
     Active Substance: SEMAGLUTIDE
  15. CITALOPRAM [Concomitant]
     Active Substance: CITALOPRAM HYDROBROMIDE
  16. IBUPROFEN 800 MG [Concomitant]
     Active Substance: IBUPROFEN
  17. LORATADINE/PSEUDOEPHEDRINE [Concomitant]
     Active Substance: LORATADINE\PSEUDOEPHEDRINE SULFATE
  18. NEOMYCIN-BACITRACIN-POLYMYAN [Concomitant]

REACTIONS (4)
  - Lipase increased [None]
  - Abdominal pain upper [None]
  - Fatigue [None]
  - Amylase increased [None]

NARRATIVE: CASE EVENT DATE: 20200309
